FAERS Safety Report 5137301-8 (Version None)
Quarter: 2006Q4

REPORT INFORMATION
  Report Type: 
  Country: None (occurrence: None)
  Receive Date: 20061030
  Receipt Date: 20051006
  Transmission Date: 20070319
  Serious: No
  Sender: FDA-Public Use
  Company Number: US-GLAXOSMITHKLINE-A0577384A

PATIENT
  Age: 73 Year
  Sex: Female

DRUGS (7)
  1. ADVAIR HFA [Suspect]
     Indication: ASTHMA
     Route: 055
  2. SYNTHROID [Concomitant]
     Route: 065
  3. NEXIUM [Concomitant]
  4. AMITRIPTYLINE HCL [Concomitant]
     Route: 065
  5. LISINOPRIL [Concomitant]
  6. ALEVE [Concomitant]
  7. MULTI-VITAMIN [Concomitant]

REACTIONS (4)
  - ERYTHEMA [None]
  - NERVOUSNESS [None]
  - PRURITUS [None]
  - THERAPEUTIC RESPONSE UNEXPECTED [None]
